FAERS Safety Report 7518555-7 (Version None)
Quarter: 2011Q2

REPORT INFORMATION
  Report Type: 
  Country: None (occurrence: None)
  Receive Date: 20110602
  Receipt Date: 20110523
  Transmission Date: 20111010
  Serious: Yes (Death, Other)
  Sender: FDA-Public Use
  Company Number: JP-MILLENNIUM PHARMACEUTICALS, INC.-2011-01583

PATIENT

DRUGS (5)
  1. RED BLOOD CELLS [Concomitant]
     Indication: ANAEMIA
     Dosage: 2 IU, UNK
  2. VELCADE [Suspect]
     Indication: MULTIPLE MYELOMA
     Dosage: 2.4 MG, UNK
     Route: 042
  3. ALBUMIN (HUMAN) [Concomitant]
     Dosage: UNK
     Dates: start: 20090601
  4. FUROSEMIDE [Concomitant]
     Indication: OEDEMA
     Dosage: UNK
     Dates: start: 20090601
  5. PLATELETS [Concomitant]
     Dosage: 10 IU, UNK

REACTIONS (6)
  - DELIRIUM [None]
  - PSEUDOMEMBRANOUS COLITIS [None]
  - DISEASE PROGRESSION [None]
  - ENTEROCOLITIS [None]
  - GENERALISED OEDEMA [None]
  - PULMONARY OEDEMA [None]
